FAERS Safety Report 14594041 (Version 1)
Quarter: 2018Q1

REPORT INFORMATION
  Report Type: Spontaneous
  Country: ZA (occurrence: ZA)
  Receive Date: 20180302
  Receipt Date: 20180302
  Transmission Date: 20180509
  Serious: Yes (Death)
  Sender: FDA-Public Use
  Company Number: ZA-PFIZER INC-2018088425

PATIENT
  Age: 64 Year
  Sex: Female

DRUGS (14)
  1. OXYNORM [Suspect]
     Active Substance: OXYCODONE HYDROCHLORIDE
     Dosage: 10 MG, UNK
  2. ADCO-ZOLPIDEM [Suspect]
     Active Substance: ZOLPIDEM TARTRATE
     Dosage: 10 MG, UNK
  3. CYMGEN [Suspect]
     Active Substance: DULOXETINE HYDROCHLORIDE
     Dosage: 30 MG, UNK
  4. OLEXAR [Suspect]
     Active Substance: OLANZAPINE
     Dosage: 2.5 MG, UNK
  5. CLOPAMON [Suspect]
     Active Substance: METOCLOPRAMIDE
     Dosage: 10 MG, UNK
  6. TRAMAZAC CO [Suspect]
     Active Substance: ACETAMINOPHEN\TRAMADOL
     Dosage: 37.5/325MG
  7. EPILIM [Suspect]
     Active Substance: VALPROATE SODIUM
     Dosage: 300 MG, UNK
  8. ATIVAN [Suspect]
     Active Substance: LORAZEPAM
     Dosage: 1 MG, UNK
  9. OMEZ /00661201/ [Suspect]
     Active Substance: OMEPRAZOLE
     Dosage: 20 MG, UNK
  10. MENACAL7 [Suspect]
     Active Substance: CALCIUM\MENAQUINONE 6\VITAMIN D
  11. MEDROL [Suspect]
     Active Substance: METHYLPREDNISOLONE
     Dosage: 4 MG, UNK
  12. PURESIS [Suspect]
     Active Substance: FUROSEMIDE
     Dosage: 40 MG, UNK
  13. TARGINACT [Suspect]
     Active Substance: NALOXONE HYDROCHLORIDE\OXYCODONE HYDROCHLORIDE
     Dosage: 20/10MG
  14. UTIN /00037101/ [Suspect]
     Active Substance: NALIDIXIC ACID
     Dosage: 400 MG, UNK

REACTIONS (1)
  - Death [Fatal]

NARRATIVE: CASE EVENT DATE: 20180217
